FAERS Safety Report 19244993 (Version 1)
Quarter: 2021Q2

REPORT INFORMATION
  Report Type: Spontaneous
  Country: US (occurrence: US)
  Receive Date: 20210511
  Receipt Date: 20210511
  Transmission Date: 20210717
  Serious: No
  Sender: FDA-Public Use
  Company Number: US-NEXGEN PHARMA, INC.-2110447

PATIENT
  Age: 61 Year
  Sex: Male

DRUGS (1)
  1. CHENODAL [Suspect]
     Active Substance: CHENODIOL
     Indication: TYPE V HYPERLIPIDAEMIA
     Route: 048
     Dates: start: 20100310, end: 20210409

REACTIONS (1)
  - Hospice care [Not Recovered/Not Resolved]
